FAERS Safety Report 12617767 (Version 1)
Quarter: 2016Q3

REPORT INFORMATION
  Report Type: Spontaneous
  Country: US (occurrence: None)
  Receive Date: 20160802
  Receipt Date: 20160802
  Transmission Date: 20161109
  Serious: Yes (Disabling)
  Sender: FDA-Public Use
  Company Number: None

PATIENT
  Age: 52 Year
  Sex: Male
  Weight: 84.82 kg

DRUGS (2)
  1. LEVOFLOXACIN JOHNSON + JOHNSON [Suspect]
     Active Substance: LEVOFLOXACIN
     Indication: SINUSITIS
     Route: 048
     Dates: start: 20160718, end: 20160719
  2. GABAPENTIN. [Concomitant]
     Active Substance: GABAPENTIN

REACTIONS (9)
  - Palpitations [None]
  - Tendon pain [None]
  - Peripheral swelling [None]
  - Insomnia [None]
  - Burning sensation [None]
  - Pain [None]
  - Arthralgia [None]
  - Rash pruritic [None]
  - Impaired work ability [None]

NARRATIVE: CASE EVENT DATE: 20160718
